FAERS Safety Report 14848600 (Version 1)
Quarter: 2018Q2

REPORT INFORMATION
  Report Type: Spontaneous
  Country: US (occurrence: US)
  Receive Date: 20180504
  Receipt Date: 20180504
  Transmission Date: 20180711
  Serious: Yes (Disabling, Other)
  Sender: FDA-Public Use
  Company Number: US-REGENERON PHARMACEUTICALS, INC.-2018-22379

PATIENT

DRUGS (2)
  1. EYLEA [Suspect]
     Active Substance: AFLIBERCEPT
     Indication: EYE HAEMORRHAGE
     Dosage: OD, MONTHLY
     Route: 031
  2. EYLEA [Suspect]
     Active Substance: AFLIBERCEPT
     Indication: EYE SWELLING
     Dosage: OD, MONTHLY, LAST DOSE - ^LAST WEEK^ (THE WEEK OF 15-APR-2018)
     Route: 031

REACTIONS (5)
  - Off label use [Unknown]
  - Vision blurred [Unknown]
  - Blindness [Unknown]
  - Eye haemorrhage [Unknown]
  - Intraocular pressure increased [Unknown]
